FAERS Safety Report 24602100 (Version 1)
Quarter: 2024Q4

REPORT INFORMATION
  Report Type: Spontaneous
  Country: DE (occurrence: None)
  Receive Date: 20241111
  Receipt Date: 20241111
  Transmission Date: 20250114
  Serious: Yes (Other)
  Sender: ORION
  Company Number: DE-MLMSERVICE-20241030-PI244827-00049-3

PATIENT
  Age: 76 Year
  Sex: Male

DRUGS (4)
  1. ENTACAPONE [Suspect]
     Active Substance: ENTACAPONE
     Indication: Parkinson^s disease
     Dosage: 5?200 MG?STRENGTH: 200 MG
  2. AMITRIPTYLINE [Suspect]
     Active Substance: AMITRIPTYLINE
     Indication: Parkinson^s disease
     Dosage: 50 MG FOR NIGHT
  3. LEVODOPA [Concomitant]
     Active Substance: LEVODOPA
     Indication: Parkinson^s disease
     Dosage: 5?125 MG/D?STRENGTH 125 MG
  4. RASAGILINE [Concomitant]
     Active Substance: RASAGILINE
     Indication: Parkinson^s disease

REACTIONS (1)
  - Hallucination [Recovering/Resolving]
